FAERS Safety Report 9189246 (Version 1)
Quarter: 2013Q1

REPORT INFORMATION
  Report Type: Spontaneous
  Country: US (occurrence: None)
  Receive Date: 20120628
  Receipt Date: 20120628
  Transmission Date: 20140127
  Serious: Yes (Hospitalization, Other)
  Sender: FDA-Public Use
  Company Number: ALL1-2012-02743

PATIENT
  Sex: Male

DRUGS (1)
  1. INTUNIV [Suspect]
     Route: 048
     Dates: start: 201205, end: 201205

REACTIONS (2)
  - Syncope [None]
  - Blood pressure decreased [None]
